FAERS Safety Report 7196679 (Version 2)
Quarter: 2018Q3

REPORT INFORMATION
  Report Type: Spontaneous
  Country: IT (occurrence: IT)
  Receive Date: 20091202
  Receipt Date: 20180824
  Transmission Date: 20181010
  Serious: Yes (Hospitalization, Other)
  Sender: FDA-Public Use
  Company Number: IT-PFIZER INC-2009301817

PATIENT
  Age: 76 Year
  Sex: Female

DRUGS (3)
  1. SINTROM [Concomitant]
     Active Substance: ACENOCOUMAROL
     Indication: PULMONARY EMBOLISM
  2. SINTROM [Concomitant]
     Active Substance: ACENOCOUMAROL
     Indication: PULMONARY INFARCTION
     Dosage: 1 UNK, UNK (1 UNIT DOSE)
     Dates: start: 20080805, end: 20090129
  3. SUTENT [Suspect]
     Active Substance: SUNITINIB MALATE
     Indication: RENAL CELL CARCINOMA
     Dosage: 50 MG, 1X/DAY
     Route: 048
     Dates: start: 20081016, end: 20090129

REACTIONS (3)
  - Gastric ulcer [Unknown]
  - Haematemesis [Recovered/Resolved]
  - Gastric haemorrhage [Unknown]

NARRATIVE: CASE EVENT DATE: 20090129
